FAERS Safety Report 6330694-5 (Version None)
Quarter: 2009Q3

REPORT INFORMATION
  Report Type: 
  Country: None (occurrence: None)
  Receive Date: 20090827
  Receipt Date: 20090817
  Transmission Date: 20100115
  Serious: Yes (Hospitalization)
  Sender: FDA-Public Use
  Company Number: ES-BAYER-200928856GPV

PATIENT
  Age: 87 Year
  Sex: Female

DRUGS (5)
  1. MOXIFLOXACIN HCL [Suspect]
     Indication: OSTEOMYELITIS
     Route: 048
     Dates: start: 20090327, end: 20090708
  2. ENALAPRIL MALEATE [Concomitant]
     Dosage: UNIT DOSE: 10 MG
     Route: 065
     Dates: start: 20090302
  3. ESERTIA [Concomitant]
     Route: 065
     Dates: start: 20090307
  4. RIFINAH [Concomitant]
     Dosage: UNIT DOSE: 300 MG
     Route: 048
     Dates: start: 20090327
  5. SEGURIL [Concomitant]
     Dosage: UNIT DOSE: 40 MG
     Route: 065
     Dates: start: 20090302

REACTIONS (7)
  - ATRIAL FIBRILLATION [None]
  - ATRIOVENTRICULAR BLOCK SECOND DEGREE [None]
  - CARDIAC FAILURE CONGESTIVE [None]
  - DYSPNOEA [None]
  - NODAL ARRHYTHMIA [None]
  - NODAL RHYTHM [None]
  - SYNCOPE [None]
